FAERS Safety Report 18116678 (Version 1)
Quarter: 2020Q3

REPORT INFORMATION
  Report Type: Spontaneous
  Country: US (occurrence: US)
  Receive Date: 20200805
  Receipt Date: 20200805
  Transmission Date: 20201103
  Serious: Yes (Other)
  Sender: FDA-Public Use
  Company Number: US-BAYER-2020-143304

PATIENT
  Age: 8 Year
  Sex: Female

DRUGS (1)
  1. VITRAKVI [Suspect]
     Active Substance: LAROTRECTINIB
     Indication: OSTEOSARCOMA
     Dosage: 100 MG, BID
     Route: 048
     Dates: start: 202006

REACTIONS (3)
  - Compression fracture [None]
  - Osteopenia [None]
  - Weight increased [None]
